FAERS Safety Report 4724840-4 (Version None)
Quarter: 2005Q3

REPORT INFORMATION
  Report Type: 
  Country: None (occurrence: None)
  Receive Date: 20050720
  Receipt Date: 20050720
  Transmission Date: 20060218
  Serious: Yes (Life-Threatening, Hospitalization, Disabling)
  Sender: FDA-Public Use
  Company Number: None

PATIENT
  Sex: Male
  Weight: 112.4921 kg

DRUGS (11)
  1. CIALIS [Suspect]
     Indication: ERECTILE DYSFUNCTION
     Dosage: 10 MG    1 DAILY PRN   ORAL
     Route: 048
     Dates: start: 20021101, end: 20040720
  2. ATENOLOL [Concomitant]
  3. LIPITOR [Concomitant]
  4. CELEBREX [Concomitant]
  5. GLYBURIDE [Concomitant]
  6. METFORMIN [Concomitant]
  7. TESTOSTERONE CYPIONATE [Concomitant]
  8. TESTIM [Concomitant]
  9. ALLEGRA [Concomitant]
  10. LORTAB [Concomitant]
  11. PERCOCET [Concomitant]

REACTIONS (7)
  - AMNESIA [None]
  - BRAIN SCAN ABNORMAL [None]
  - CEREBRAL HAEMORRHAGE [None]
  - CONVULSION [None]
  - DIZZINESS [None]
  - HEADACHE [None]
  - SUBDURAL HAEMATOMA [None]
